FAERS Safety Report 8384769-X (Version None)
Quarter: 2012Q2

REPORT INFORMATION
  Report Type: 
  Country: None (occurrence: None)
  Receive Date: 20120524
  Receipt Date: 20120521
  Transmission Date: 20120825
  Serious: Yes (Life-Threatening)
  Sender: FDA-Public Use
  Company Number: US-ROCHE-1070383

PATIENT
  Sex: Female
  Weight: 172.97 kg

DRUGS (12)
  1. XOLAIR [Suspect]
     Indication: ASTHMA
     Route: 058
     Dates: start: 20060322, end: 20060405
  2. ASTELIN [Concomitant]
     Indication: RHINITIS ALLERGIC
     Route: 045
  3. SINGULAIR [Concomitant]
     Indication: RHINITIS ALLERGIC
     Route: 048
  4. ADVAIR DISKUS 100/50 [Concomitant]
     Indication: ASTHMA
  5. SINGULAIR [Concomitant]
     Indication: ASTHMA
  6. HYDROXYZINE [Concomitant]
     Indication: URTICARIA CHRONIC
     Route: 048
  7. RANITIDINE [Concomitant]
     Indication: URTICARIA CHRONIC
     Route: 048
  8. ZYRTEC [Concomitant]
     Indication: RHINITIS ALLERGIC
     Route: 048
  9. BIAXIN (UNITED STATES) [Concomitant]
     Route: 048
     Dates: start: 20060405
  10. HYDROXYZINE [Concomitant]
     Indication: ANGIOEDEMA
  11. ALBUTEROL [Concomitant]
     Indication: ASTHMA
  12. RANITIDINE [Concomitant]
     Indication: ANGIOEDEMA

REACTIONS (1)
  - DYSPNOEA [None]
